FAERS Safety Report 13933206 (Version 2)
Quarter: 2017Q3

REPORT INFORMATION
  Report Type: Spontaneous
  Country: TH (occurrence: TH)
  Receive Date: 20170904
  Receipt Date: 20170919
  Transmission Date: 20171127
  Serious: Yes (Hospitalization, Other)
  Sender: FDA-Public Use
  Company Number: TH-009507513-1709THA000408

PATIENT
  Age: 82 Year
  Sex: Male

DRUGS (1)
  1. NASONEX [Suspect]
     Active Substance: MOMETASONE FUROATE
     Indication: RHINITIS ALLERGIC
     Dosage: 1 PUFF, BID
     Route: 055
     Dates: start: 201503, end: 201708

REACTIONS (3)
  - Oesophageal candidiasis [Unknown]
  - Abdominal pain upper [Unknown]
  - Oral candidiasis [Unknown]

NARRATIVE: CASE EVENT DATE: 20170707
